FAERS Safety Report 7710813-6 (Version None)
Quarter: 2011Q3

REPORT INFORMATION
  Report Type: 
  Country: None (occurrence: None)
  Receive Date: 20110825
  Receipt Date: 20110816
  Transmission Date: 20111222
  Serious: Yes (Other)
  Sender: FDA-Public Use
  Company Number: US-AMGEN-USASP2011041695

PATIENT
  Sex: Female

DRUGS (1)
  1. ENBREL [Suspect]
     Indication: ANKYLOSING SPONDYLITIS
     Dosage: 25 MG, 2 TIMES/WK
     Dates: start: 20060801

REACTIONS (9)
  - BACK PAIN [None]
  - CARPAL TUNNEL SYNDROME [None]
  - OROPHARYNGEAL PAIN [None]
  - FATIGUE [None]
  - INJECTION SITE INDURATION [None]
  - LIMB INJURY [None]
  - ROAD TRAFFIC ACCIDENT [None]
  - SKIN INDURATION [None]
  - INJECTION SITE MASS [None]
